FAERS Safety Report 6610177-5 (Version None)
Quarter: 2010Q1

REPORT INFORMATION
  Report Type: 
  Country: None (occurrence: None)
  Receive Date: 20100302
  Receipt Date: 20100224
  Transmission Date: 20100710
  Serious: Yes (Hospitalization)
  Sender: FDA-Public Use
  Company Number: ES-BRISTOL-MYERS SQUIBB COMPANY-14990162

PATIENT
  Age: 53 Year
  Sex: Female

DRUGS (2)
  1. TAXOL [Suspect]
     Indication: BREAST CANCER METASTATIC
     Dosage: 04JUN09-18JUN09:40MG/M2,18JUN09-30JUL09:60MG/M2
     Route: 042
     Dates: start: 20090604, end: 20090730
  2. HERCEPTIN [Interacting]
     Indication: BREAST CANCER METASTATIC
     Dosage: 150 MG VIAL
     Route: 042
     Dates: start: 20090604

REACTIONS (3)
  - DRUG INTERACTION [None]
  - FEBRILE NEUTROPENIA [None]
  - STOMATITIS [None]
